FAERS Safety Report 11515778 (Version 1)
Quarter: 2015Q3

REPORT INFORMATION
  Report Type: Report from Study
  Country: US (occurrence: US)
  Receive Date: 20150916
  Receipt Date: 20150916
  Transmission Date: 20151125
  Serious: Yes (Other)
  Sender: FDA-Public Use
  Company Number: US-ABBVIE-15P-163-1460127-00

PATIENT
  Age: 27 Year
  Sex: Female

DRUGS (1)
  1. LUPRON DEPOT [Suspect]
     Active Substance: LEUPROLIDE ACETATE
     Indication: UTERINE LEIOMYOMA
     Route: 030
     Dates: start: 20150901

REACTIONS (5)
  - Swelling face [Not Recovered/Not Resolved]
  - Skin tightness [Not Recovered/Not Resolved]
  - Dysgeusia [Not Recovered/Not Resolved]
  - Facial asymmetry [Not Recovered/Not Resolved]
  - Eyelid function disorder [Not Recovered/Not Resolved]

NARRATIVE: CASE EVENT DATE: 20150904
